FAERS Safety Report 7407468-7 (Version None)
Quarter: 2011Q2

REPORT INFORMATION
  Report Type: 
  Country: None (occurrence: None)
  Receive Date: 20110411
  Receipt Date: 20110329
  Transmission Date: 20111010
  Serious: Yes (Other)
  Sender: FDA-Public Use
  Company Number: AU-MYLANLABS-2011S1006349

PATIENT
  Age: 32 Year
  Sex: Female

DRUGS (7)
  1. NEURONTIN [Concomitant]
  2. TOPAMAX [Concomitant]
  3. LOVAN [Suspect]
     Indication: MOOD SWINGS
     Route: 048
     Dates: start: 20110312, end: 20110315
  4. LOVAN [Suspect]
     Route: 048
     Dates: start: 20110316, end: 20110326
  5. VIMPAT [Concomitant]
  6. DILANTIN [Concomitant]
  7. LAMICTAL [Concomitant]

REACTIONS (4)
  - DECREASED APPETITE [None]
  - CONVULSION [None]
  - CONDITION AGGRAVATED [None]
  - NAUSEA [None]
